APPROVED DRUG PRODUCT: AREDIA
Active Ingredient: PAMIDRONATE DISODIUM
Strength: 60MG/VIAL
Dosage Form/Route: INJECTABLE;INJECTION
Application: N020036 | Product #003
Applicant: NOVARTIS PHARMACEUTICALS CORP
Approved: May 6, 1993 | RLD: No | RS: No | Type: DISCN